FAERS Safety Report 10340848 (Version 2)
Quarter: 2014Q3

REPORT INFORMATION
  Report Type: Spontaneous
  Country: US (occurrence: None)
  Receive Date: 20140722
  Receipt Date: 20140729
  Transmission Date: 20150326
  Serious: Yes (Hospitalization, Other)
  Sender: FDA-Public Use
  Company Number: ADR-2014-01271

PATIENT
  Age: 34 Year
  Sex: Female

DRUGS (3)
  1. MORPHINE [Suspect]
     Active Substance: MORPHINE
     Dosage: SEE B5
  2. BACLOFEN. [Suspect]
     Active Substance: BACLOFEN
     Indication: PAIN
     Dosage: SEE B5
  3. ORAL CONTRACEPTIVE [Suspect]
     Active Substance: UNSPECIFIED INGREDIENT

REACTIONS (6)
  - Implant site erythema [None]
  - Hypersensitivity [None]
  - Implant site discharge [None]
  - Pulmonary embolism [None]
  - Post procedural complication [None]
  - Activities of daily living impaired [None]

NARRATIVE: CASE EVENT DATE: 20140628
